FAERS Safety Report 8521387-4 (Version None)
Quarter: 2012Q3

REPORT INFORMATION
  Report Type: 
  Country: None (occurrence: None)
  Receive Date: 20120719
  Receipt Date: 20110613
  Transmission Date: 20120928
  Serious: No
  Sender: FDA-Public Use
  Company Number: US-BRISTOL-MYERS SQUIBB COMPANY-15834336

PATIENT

DRUGS (2)
  1. FLUCONAZOLE [Interacting]
     Indication: INFECTION
  2. SPRYCEL [Suspect]

REACTIONS (1)
  - DRUG INTERACTION [None]
